FAERS Safety Report 24313619 (Version 1)
Quarter: 2024Q3

REPORT INFORMATION
  Report Type: Report from Study
  Country: US (occurrence: US)
  Receive Date: 20240912
  Receipt Date: 20240912
  Transmission Date: 20241016
  Serious: Yes (Hospitalization)
  Sender: EISAI
  Company Number: US-Eisai-EC-2024-172640

PATIENT
  Age: 42 Year
  Sex: Female
  Weight: 71.66 kg

DRUGS (8)
  1. LENVIMA [Suspect]
     Active Substance: LENVATINIB
     Indication: Endometrial cancer
     Route: 048
     Dates: start: 202408, end: 202409
  2. NALOXONE HCL [Concomitant]
     Active Substance: NALOXONE HYDROCHLORIDE
     Dosage: DOSE AND FREQUENCY UNKNOWN
  3. ONDANSETRON [Concomitant]
     Active Substance: ONDANSETRON
     Dosage: DOSE AND FREQUENCY UNKNOWN
  4. VITAMINS [Concomitant]
     Active Substance: VITAMINS
     Dosage: DOSE AND FREQUENCY UNKNOWN
  5. ELIQUIS [Concomitant]
     Active Substance: APIXABAN
     Dosage: DOSE AND FREQUENCY UNKNOWN
  6. ROXICODONE [Concomitant]
     Active Substance: OXYCODONE HYDROCHLORIDE
     Dosage: DOSE AND FREQUENCY UNKNOWN
  7. MIRALAX [Concomitant]
     Active Substance: POLYETHYLENE GLYCOL 3350
     Dosage: DOSE AND FREQUENCY UNKNOWN
  8. PROCHLORPERAZINE [Concomitant]
     Active Substance: PROCHLORPERAZINE
     Dosage: DOSE AND FREQUENCY UNKNOWN

REACTIONS (4)
  - Hypertensive crisis [Not Recovered/Not Resolved]
  - Gastrointestinal infection [Not Recovered/Not Resolved]
  - Arthralgia [Not Recovered/Not Resolved]
  - Chills [Unknown]

NARRATIVE: CASE EVENT DATE: 20240101
